FAERS Safety Report 13153280 (Version 1)
Quarter: 2017Q1

REPORT INFORMATION
  Report Type: Spontaneous
  Country: JP (occurrence: JP)
  Receive Date: 20170126
  Receipt Date: 20170126
  Transmission Date: 20170428
  Serious: Yes (Congenital Anomaly, Other)
  Sender: FDA-Public Use
  Company Number: JP-ASTELLAS-2017JP000858

PATIENT
  Age: 6 Day
  Sex: Male
  Weight: 4 kg

DRUGS (2)
  1. PROGRAF [Suspect]
     Active Substance: TACROLIMUS\TACROLIMUS ANHYDROUS
     Indication: FOETAL EXPOSURE DURING PREGNANCY
     Route: 064
     Dates: start: 20151102, end: 20151224
  2. LUTORAL [Concomitant]
     Active Substance: CHLORMADINONE ACETATE
     Indication: FOETAL EXPOSURE DURING PREGNANCY
     Dosage: 2 TABLETS, TWICE DAILY
     Route: 064
     Dates: start: 20151017, end: 20151208

REACTIONS (1)
  - Congenital hydronephrosis [Recovered/Resolved]

NARRATIVE: CASE EVENT DATE: 20160712
